FAERS Safety Report 18622963 (Version 1)
Quarter: 2020Q4

REPORT INFORMATION
  Report Type: Spontaneous
  Country: US (occurrence: US)
  Receive Date: 20201216
  Receipt Date: 20201216
  Transmission Date: 20210114
  Serious: No
  Sender: FDA-Public Use
  Company Number: US-MYLANLABS-2020M1094589

PATIENT
  Sex: Female
  Weight: 61 kg

DRUGS (1)
  1. CLOBETASOL PROPIONATE FOAM [Suspect]
     Active Substance: CLOBETASOL PROPIONATE
     Indication: PSORIASIS
     Dosage: UNK UNK, PRN (AS NEEDED)
     Route: 003

REACTIONS (2)
  - Product quality issue [Unknown]
  - Product use complaint [Unknown]
